FAERS Safety Report 13051852 (Version 1)
Quarter: 2016Q4

REPORT INFORMATION
  Report Type: Spontaneous
  Country: US (occurrence: US)
  Receive Date: 20161221
  Receipt Date: 20161221
  Transmission Date: 20170207
  Serious: Yes (Other)
  Sender: FDA-Public Use
  Company Number: US-SAGENTPRD-2016-US-000120

PATIENT
  Age: 61 Year
  Sex: Female

DRUGS (5)
  1. TRASTUZUMAB [Concomitant]
     Active Substance: TRASTUZUMAB
  2. DOXORUBICIN HYDROCHLORIDE INJECTION, USP [Suspect]
     Active Substance: DOXORUBICIN HYDROCHLORIDE
     Dosage: UNKNOWN
  3. CYCLOPHOSPHAMIDE. [Concomitant]
     Active Substance: CYCLOPHOSPHAMIDE
  4. PACLITAXEL. [Concomitant]
     Active Substance: PACLITAXEL
  5. DOCETAXEL. [Concomitant]
     Active Substance: DOCETAXEL

REACTIONS (6)
  - Alopecia [Unknown]
  - Neutropenia [Unknown]
  - Hyperlipidaemia [Unknown]
  - Ejection fraction decreased [Unknown]
  - Leukopenia [Unknown]
  - Administration site extravasation [Unknown]
